FAERS Safety Report 5638010-9 (Version None)
Quarter: 2008Q1

REPORT INFORMATION
  Report Type: 
  Country: None (occurrence: None)
  Receive Date: 20080222
  Receipt Date: 20080222
  Transmission Date: 20080703
  Serious: Yes (Other)
  Sender: FDA-Public Use
  Company Number: None

PATIENT
  Sex: Male
  Weight: 122.0176 kg

DRUGS (1)
  1. NEOMYCIN [Suspect]
     Indication: HEPATIC ENCEPHALOPATHY
     Dosage: PO
     Route: 048
     Dates: start: 20080208, end: 20080214

REACTIONS (5)
  - ASTHENIA [None]
  - FALL [None]
  - HYPOAESTHESIA [None]
  - MUSCLE TWITCHING [None]
  - NEUROMUSCULAR BLOCKADE [None]
